FAERS Safety Report 16211606 (Version 6)
Quarter: 2023Q4

REPORT INFORMATION
  Report Type: Spontaneous
  Country: JP (occurrence: JP)
  Receive Date: 20190418
  Receipt Date: 20231220
  Transmission Date: 20240109
  Serious: Yes (Hospitalization, Other)
  Sender: FDA-Public Use
  Company Number: JP-ASTELLAS-2018JP016052

PATIENT
  Age: 29 Year
  Sex: Female
  Weight: 56 kg

DRUGS (8)
  1. PROGRAF [Suspect]
     Active Substance: TACROLIMUS
     Indication: Rheumatoid arthritis
     Route: 048
     Dates: start: 20180115, end: 20190407
  2. PROGRAF [Suspect]
     Active Substance: TACROLIMUS
     Dosage: 0.5 MG, ONCE DAILY
     Route: 048
     Dates: start: 20190930
  3. CIMZIA [Suspect]
     Active Substance: CERTOLIZUMAB PEGOL
     Indication: Rheumatoid arthritis
     Route: 058
     Dates: start: 20171002, end: 20171030
  4. CIMZIA [Suspect]
     Active Substance: CERTOLIZUMAB PEGOL
     Route: 058
     Dates: end: 20190407
  5. CIMZIA [Suspect]
     Active Substance: CERTOLIZUMAB PEGOL
     Indication: Rheumatoid arthritis
     Route: 058
     Dates: start: 20190318, end: 20190401
  6. CIMZIA [Suspect]
     Active Substance: CERTOLIZUMAB PEGOL
     Route: 058
     Dates: start: 20190723
  7. PREDONINE [Suspect]
     Active Substance: PREDNISOLONE
     Indication: Rheumatoid arthritis
     Route: 048
     Dates: start: 20190111
  8. POLARAMINE [Concomitant]
     Active Substance: DEXCHLORPHENIRAMINE MALEATE
     Indication: Pruritus
     Route: 048
     Dates: start: 20190322, end: 20190407

REACTIONS (2)
  - Premature rupture of membranes [Recovered/Resolved]
  - Prescribed underdose [Unknown]

NARRATIVE: CASE EVENT DATE: 20190407
